FAERS Safety Report 8551515-6 (Version None)
Quarter: 2012Q3

REPORT INFORMATION
  Report Type: 
  Country: None (occurrence: None)
  Receive Date: 20120730
  Receipt Date: 20120720
  Transmission Date: 20120928
  Serious: Yes (Disabling, Other)
  Sender: FDA-Public Use
  Company Number: GB-TEVA-349341ISR

PATIENT
  Age: 55 Year
  Sex: Male

DRUGS (7)
  1. SIMVASTATIN [Concomitant]
     Indication: BLOOD CHOLESTEROL
     Route: 048
     Dates: start: 20070101
  2. DOXAZOSIN MESYLATE [Suspect]
     Dosage: TAKING 1MG JUNE 2011, THEN 2MG JULY 2011 FOLLOWED BY 4MG AUGUST 2011
     Route: 048
     Dates: start: 20110701, end: 20110801
  3. DOXAZOSIN MESYLATE [Suspect]
     Indication: HYPERTENSION
     Dosage: TAKING 1MG JUNE 2011, THEN 2MG JULY 2011 FOLLOWED BY 4MG AUGUST 2011
     Route: 048
     Dates: start: 20110601, end: 20110701
  4. BENDROFLUMETHIAZIDE [Concomitant]
     Indication: HYPERTENSION
     Route: 048
     Dates: start: 20070101
  5. GLICLAZIDE [Concomitant]
     Indication: TYPE 2 DIABETES MELLITUS
     Route: 048
     Dates: start: 20070101
  6. METFORMIN HYDROCHLORIDE [Concomitant]
     Indication: TYPE 2 DIABETES MELLITUS
     Route: 048
     Dates: start: 20070101
  7. DOXAZOSIN MESYLATE [Suspect]
     Dosage: TAKING 1MG JUNE 2011, THEN 2MG JULY 2011 FOLLOWED BY 4MG AUGUST 2011
     Route: 048
     Dates: start: 20110801, end: 20110822

REACTIONS (5)
  - WEIGHT DECREASED [None]
  - ARTHRITIS INFECTIVE [None]
  - HAEMOGLOBIN DECREASED [None]
  - RHEUMATOID ARTHRITIS [None]
  - JOINT SWELLING [None]
